FAERS Safety Report 4881895-4 (Version None)
Quarter: 2006Q1

REPORT INFORMATION
  Report Type: 
  Country: None (occurrence: None)
  Receive Date: 20060111
  Receipt Date: 20060111
  Transmission Date: 20060701
  Serious: Yes (Life-Threatening, Hospitalization, Disabling, Other)
  Sender: FDA-Public Use
  Company Number: None

PATIENT
  Age: 38 Year
  Sex: Male
  Weight: 113.3993 kg

DRUGS (4)
  1. CLARITHROMYCIN [Suspect]
     Indication: HELICOBACTER INFECTION
     Dosage: 500 MG   1 DAILY   PO
     Route: 048
     Dates: start: 20051101, end: 20051103
  2. HYDROCHLOROTHIAZIDE [Concomitant]
  3. OMEPRAZOLE [Concomitant]
  4. RAMIPRIL [Concomitant]

REACTIONS (2)
  - ABDOMINAL PAIN UPPER [None]
  - PANCREATITIS ACUTE [None]
